FAERS Safety Report 23248478 (Version 1)
Quarter: 2023Q4

REPORT INFORMATION
  Report Type: Spontaneous
  Country: BR (occurrence: BR)
  Receive Date: 20231201
  Receipt Date: 20231201
  Transmission Date: 20240110
  Serious: Yes (Other)
  Sender: FDA-Public Use
  Company Number: BR-GLAXOSMITHKLINE-BR2023AMR114824

PATIENT

DRUGS (3)
  1. BENLYSTA [Suspect]
     Active Substance: BELIMUMAB
     Indication: Systemic lupus erythematosus
     Dosage: 840 MG (FOR MORE THAN 5 YEARS)
     Dates: start: 20171010
  2. BENLYSTA [Suspect]
     Active Substance: BELIMUMAB
     Dosage: 120 MG, Q4W X7
     Route: 042
  3. PREDNISOLONE [Concomitant]
     Active Substance: PREDNISOLONE
     Indication: Product used for unknown indication
     Dosage: 5 MG

REACTIONS (6)
  - Immunodeficiency [Unknown]
  - Rhinitis [Not Recovered/Not Resolved]
  - Migraine [Unknown]
  - Headache [Unknown]
  - Nervousness [Unknown]
  - Product dose omission issue [Unknown]
